FAERS Safety Report 16964112 (Version 1)
Quarter: 2019Q4

REPORT INFORMATION
  Report Type: Spontaneous
  Country: CN (occurrence: CN)
  Receive Date: 20191026
  Receipt Date: 20191026
  Transmission Date: 20200122
  Serious: Yes (Other)
  Sender: FDA-Public Use
  Company Number: NVSC2019CN016840

PATIENT
  Age: 84 Year
  Sex: Female
  Weight: 47 kg

DRUGS (1)
  1. TOBRADEX [Suspect]
     Active Substance: DEXAMETHASONE\TOBRAMYCIN
     Indication: INFECTION PROPHYLAXIS
     Dosage: 1 GTT, QID
     Route: 031
     Dates: start: 20191002, end: 20191007

REACTIONS (3)
  - Conjunctival hyperaemia [Recovered/Resolved]
  - Photophobia [Recovered/Resolved]
  - Corneal epithelium defect [Recovered/Resolved]

NARRATIVE: CASE EVENT DATE: 20191007
